FAERS Safety Report 10810216 (Version 3)
Quarter: 2015Q2

REPORT INFORMATION
  Report Type: Spontaneous
  Country: US (occurrence: None)
  Receive Date: 20150212
  Receipt Date: 20150529
  Transmission Date: 20150821
  Serious: No
  Sender: FDA-Public Use
  Company Number: 1713747-2015-99947

PATIENT
  Age: 38 Year
  Sex: Female
  Weight: 66 kg

DRUGS (26)
  1. 0.9% SODIUM CHLORIDE [Suspect]
     Active Substance: SODIUM CHLORIDE
     Indication: CHRONIC KIDNEY DISEASE
     Dosage: HEMODIALYSIS
     Dates: start: 20130130
  2. ZOLOFT [Concomitant]
     Active Substance: SERTRALINE HYDROCHLORIDE
  3. LOVENOX [Concomitant]
     Active Substance: ENOXAPARIN SODIUM
  4. ZEMPLAR [Concomitant]
     Active Substance: PARICALCITOL
  5. COUMADIN [Concomitant]
     Active Substance: WARFARIN SODIUM
  6. OPTIFLUX [Concomitant]
  7. NATURALYTE [Concomitant]
     Active Substance: ACETIC ACID\SODIUM ACETATE
  8. RENVELA [Concomitant]
     Active Substance: SEVELAMER CARBONATE
  9. LISINOPRIL. [Concomitant]
     Active Substance: LISINOPRIL
  10. TRAZODONE [Concomitant]
     Active Substance: TRAZODONE HYDROCHLORIDE
  11. LANTUS [Concomitant]
     Active Substance: INSULIN GLARGINE
  12. GRANUFLO [Concomitant]
     Active Substance: ACETIC ACID\SODIUM ACETATE
  13. FMC BLOOD LINES [Concomitant]
  14. EPOGEN [Concomitant]
     Active Substance: ERYTHROPOIETIN
  15. BABY ASPIRIN [Concomitant]
     Active Substance: ASPIRIN
  16. GABAPENTIN. [Concomitant]
     Active Substance: GABAPENTIN
  17. NORVASC [Concomitant]
     Active Substance: AMLODIPINE BESYLATE
  18. TUMS [Concomitant]
     Active Substance: CALCIUM CARBONATE
  19. NEURONTIN [Concomitant]
     Active Substance: GABAPENTIN
  20. NEPHRO-CAPS [Concomitant]
  21. NORMAL SALINE [Concomitant]
     Active Substance: SODIUM CHLORIDE
  22. FRESENIUS 2008K DIALYSIS MACHINE [Concomitant]
  23. SODIUM BICARBONATE. [Concomitant]
     Active Substance: SODIUM BICARBONATE
  24. CALCIFEROL [Concomitant]
     Active Substance: ERGOCALCIFEROL
  25. HUMALOG [Concomitant]
     Active Substance: INSULIN LISPRO
  26. COREG [Concomitant]
     Active Substance: CARVEDILOL

REACTIONS (4)
  - Dialysis related complication [None]
  - Blood pressure decreased [None]
  - Refusal of treatment by patient [None]
  - Unresponsive to stimuli [None]

NARRATIVE: CASE EVENT DATE: 20130130
